FAERS Safety Report 15609818 (Version 2)
Quarter: 2019Q1

REPORT INFORMATION
  Report Type: Spontaneous
  Country: US (occurrence: US)
  Receive Date: 20181113
  Receipt Date: 20190118
  Transmission Date: 20190417
  Serious: No
  Sender: FDA-Public Use
  Company Number: US-LEO PHARMA-314848

PATIENT
  Age: 72 Year
  Sex: Female

DRUGS (4)
  1. ASOPT [Concomitant]
     Indication: GLAUCOMA
  2. DAIVOBET [Suspect]
     Active Substance: BETAMETHASONE DIPROPIONATE\CALCIPOTRIENE
  3. DAIVOBET [Suspect]
     Active Substance: BETAMETHASONE DIPROPIONATE\CALCIPOTRIENE
     Indication: PSORIASIS
     Dosage: STARTED 3 WEEKS AGO
  4. TIMOLOL. [Concomitant]
     Active Substance: TIMOLOL
     Indication: GLAUCOMA

REACTIONS (4)
  - Accidental exposure to product [Unknown]
  - Drug ineffective [Unknown]
  - Inappropriate schedule of product administration [Unknown]
  - Dizziness [Not Recovered/Not Resolved]
